FAERS Safety Report 22090905 (Version 4)
Quarter: 2024Q1

REPORT INFORMATION
  Report Type: Other
  Country: EG (occurrence: None)
  Receive Date: 20230314
  Receipt Date: 20240221
  Transmission Date: 20240409
  Serious: Yes (Other)
  Sender: FDA-Public Use
  Company Number: EG-ROCHE-3305858

PATIENT
  Age: 33 Year
  Sex: Female
  Weight: 73 kg

DRUGS (1)
  1. OCREVUS [Suspect]
     Active Substance: OCRELIZUMAB
     Indication: Multiple sclerosis
     Route: 042
     Dates: start: 20220114

REACTIONS (5)
  - Multiple sclerosis [Not Recovered/Not Resolved]
  - Tooth abscess [Not Recovered/Not Resolved]
  - Iron deficiency anaemia [Recovering/Resolving]
  - Limb discomfort [Not Recovered/Not Resolved]
  - Pain in extremity [Not Recovered/Not Resolved]

NARRATIVE: CASE EVENT DATE: 20230314
